FAERS Safety Report 15272431 (Version 1)
Quarter: 2018Q3

REPORT INFORMATION
  Report Type: Spontaneous
  Country: ZA (occurrence: ZA)
  Receive Date: 20180813
  Receipt Date: 20180813
  Transmission Date: 20181010
  Serious: Yes (Hospitalization)
  Sender: FDA-Public Use
  Company Number: ZA-PFIZER INC-2018308752

PATIENT
  Age: 52 Year
  Sex: Female

DRUGS (11)
  1. ZARTAN [Suspect]
     Active Substance: LOSARTAN POTASSIUM
     Dosage: 50 MG, UNK
  2. BRAZEPAM [Suspect]
     Active Substance: BROMAZEPAM
     Dosage: 5 MG, UNK
  3. FUROSEMIDE. [Suspect]
     Active Substance: FUROSEMIDE
     Dosage: 40 MG, UNK
  4. PLENISH?K [Suspect]
     Active Substance: POTASSIUM CHLORIDE
     Dosage: 600 MG, UNK
  5. ECOTRIN [Suspect]
     Active Substance: ASPIRIN
     Dosage: 81 MG, UNK
  6. AUSTELL METFORMIN [Suspect]
     Active Substance: METFORMIN HYDROCHLORIDE
     Dosage: 850 MG, UNK
  7. NOVOMIX [Suspect]
     Active Substance: INSULIN ASPART
     Dosage: 100 IU/ML, UNK
  8. PEARINDA PLUS [Suspect]
     Active Substance: INDAPAMIDE\PERINDOPRIL
     Dosage: 4/1.25 MG
  9. FEDALOC [Suspect]
     Active Substance: NIFEDIPINE
     Dosage: 90 MG, UNK
  10. LONITEN [Suspect]
     Active Substance: MINOXIDIL
     Dosage: 5 MG, UNK
  11. CARDICOR [Suspect]
     Active Substance: BISOPROLOL
     Dosage: 5 MG, UNK

REACTIONS (1)
  - Myocardial infarction [Unknown]
